FAERS Safety Report 5124764-7 (Version None)
Quarter: 2006Q4

REPORT INFORMATION
  Report Type: 
  Country: None (occurrence: None)
  Receive Date: 20061011
  Receipt Date: 20050914
  Transmission Date: 20070319
  Serious: Yes (Disabling)
  Sender: FDA-Public Use
  Company Number: US-ROCHE-417933

PATIENT
  Age: 15 Year
  Sex: Male
  Weight: 99.8 kg

DRUGS (7)
  1. ACCUTANE [Suspect]
     Indication: ACNE
     Route: 048
     Dates: start: 20010415, end: 20020115
  2. COCAINE [Concomitant]
     Dates: start: 20000615, end: 20050615
  3. METHAMPHETAMINE HYDROCHLORIDE [Concomitant]
     Dates: start: 20000615, end: 20050615
  4. MARIJUANA [Concomitant]
     Dates: start: 20000615, end: 20050615
  5. ECSTASY [Concomitant]
     Dates: start: 20000615, end: 20050615
  6. PREDNISONE TAB [Concomitant]
  7. ZITHROMAX [Concomitant]

REACTIONS (52)
  - ABNORMAL BEHAVIOUR [None]
  - AFFECT LABILITY [None]
  - AGGRESSION [None]
  - ALANINE AMINOTRANSFERASE INCREASED [None]
  - ALCOHOLISM [None]
  - ANGER [None]
  - ANHEDONIA [None]
  - ANXIETY [None]
  - AUTOMATISM [None]
  - BONE DISORDER [None]
  - BRONCHITIS [None]
  - DELIRIUM [None]
  - DELUSION [None]
  - DEPERSONALISATION [None]
  - DEPRESSION [None]
  - DISTRACTIBILITY [None]
  - DISTURBANCE IN ATTENTION [None]
  - DRUG ABUSER [None]
  - FAILED EXAMINATIONS [None]
  - FATIGUE [None]
  - FEAR [None]
  - FEELING GUILTY [None]
  - FEELING OF DESPAIR [None]
  - FEELINGS OF WORTHLESSNESS [None]
  - FLIGHT OF IDEAS [None]
  - GASTROINTESTINAL DISORDER [None]
  - HEADACHE [None]
  - HIGH DENSITY LIPOPROTEIN DECREASED [None]
  - HYPERTRIGLYCERIDAEMIA [None]
  - IMPULSE-CONTROL DISORDER [None]
  - INFLAMMATORY BOWEL DISEASE [None]
  - INJURY [None]
  - INSOMNIA [None]
  - IRRITABILITY [None]
  - IRRITABLE BOWEL SYNDROME [None]
  - LARYNGOTRACHEO BRONCHITIS [None]
  - LEGAL PROBLEM [None]
  - MAJOR DEPRESSION [None]
  - MENTAL DISORDER [None]
  - MUSCLE INJURY [None]
  - PERFORMANCE FEAR [None]
  - PHARYNGITIS [None]
  - RESPIRATORY DISORDER [None]
  - RESTLESSNESS [None]
  - RHINORRHOEA [None]
  - SELF ESTEEM DECREASED [None]
  - SLEEP DISORDER [None]
  - SOCIAL PROBLEM [None]
  - THEFT [None]
  - TINEA VERSICOLOUR [None]
  - TRUANCY [None]
  - XEROSIS [None]
